FAERS Safety Report 13732663 (Version 2)
Quarter: 2017Q3

REPORT INFORMATION
  Report Type: Spontaneous
  Country: IT (occurrence: IT)
  Receive Date: 20170707
  Receipt Date: 20170718
  Transmission Date: 20171127
  Serious: Yes (Other)
  Sender: FDA-Public Use
  Company Number: PHHY2017IT097224

PATIENT
  Age: 39 Year
  Sex: Female

DRUGS (1)
  1. RISPERIDONE. [Suspect]
     Active Substance: RISPERIDONE
     Indication: DEMENTIA ALZHEIMER^S TYPE
     Dosage: 10 ML, TOTAL
     Route: 048
     Dates: start: 20170621, end: 20170621

REACTIONS (3)
  - Medication error [Unknown]
  - Sopor [Unknown]
  - Accidental overdose [Unknown]

NARRATIVE: CASE EVENT DATE: 20170621
